APPROVED DRUG PRODUCT: ZOLMITRIPTAN
Active Ingredient: ZOLMITRIPTAN
Strength: 2.5MG
Dosage Form/Route: TABLET;ORAL
Application: A202078 | Product #001
Applicant: APOTEX INC
Approved: May 14, 2013 | RLD: No | RS: No | Type: DISCN